FAERS Safety Report 6699574-X (Version None)
Quarter: 2010Q2

REPORT INFORMATION
  Report Type: 
  Country: None (occurrence: None)
  Receive Date: 20100428
  Receipt Date: 20100426
  Transmission Date: 20101027
  Serious: Yes (Other)
  Sender: FDA-Public Use
  Company Number: US-ASTRAZENECA-2008UW04680

PATIENT
  Age: 624 Month
  Sex: Male
  Weight: 90.7 kg

DRUGS (17)
  1. SEROQUEL [Suspect]
     Indication: BIPOLAR DISORDER
     Dosage: 300 MG TO 600 MG
     Route: 048
     Dates: start: 19990101, end: 20030101
  2. LYRICA [Concomitant]
     Dosage: 50 - 100 MG
     Route: 065
  3. NEURONTIN [Concomitant]
     Dosage: 600 MG Q. 6 H
     Route: 065
  4. MS CONTIN [Concomitant]
     Dosage: 100 - 200 MG
     Route: 048
  5. ROZEREM [Concomitant]
     Dosage: 8 MG PO, 1 TAB QHS
     Route: 065
  6. SYNTHROID [Concomitant]
     Route: 048
  7. CYMBALTA [Concomitant]
     Dosage: 30 - 60 MG QD
     Route: 048
  8. NORVASC [Concomitant]
     Route: 048
  9. PRINIVIL [Concomitant]
  10. LEVITRA [Concomitant]
     Route: 065
  11. NITRO-TIME [Concomitant]
     Route: 065
  12. EFFEXOR XR [Concomitant]
     Route: 065
  13. METFORMIN [Concomitant]
     Dosage: 500 - 1000 MG TWICE DAILY
     Route: 048
  14. DOXAZOSIN [Concomitant]
     Route: 048
  15. ACARBOSE [Concomitant]
     Route: 065
  16. RISPERDAL [Concomitant]
     Indication: BIPOLAR DISORDER
     Dates: start: 19980101, end: 20000101
  17. ZYPREXA [Concomitant]
     Indication: BIPOLAR DISORDER
     Dates: start: 19980101, end: 20030101

REACTIONS (2)
  - DIABETIC NEUROPATHY [None]
  - TYPE 2 DIABETES MELLITUS [None]
